FAERS Safety Report 7378640-X (Version None)
Quarter: 2011Q1

REPORT INFORMATION
  Report Type: 
  Country: None (occurrence: None)
  Receive Date: 20110328
  Receipt Date: 20110318
  Transmission Date: 20110831
  Serious: Yes (Hospitalization)
  Sender: FDA-Public Use
  Company Number: NZ-ABBOTT-11P-118-0713601-00

PATIENT

DRUGS (3)
  1. RITONAVIR [Suspect]
     Indication: HEPATITIS C
     Route: 048
  2. PEGINTERFERON ALFA-2A W/RIBAVIRIN [Concomitant]
     Indication: HEPATITIS C
  3. DANOPREVIR [Concomitant]
     Indication: HEPATITIS C
     Route: 048

REACTIONS (1)
  - MOOD ALTERED [None]
